FAERS Safety Report 10097734 (Version 1)
Quarter: 2014Q2

REPORT INFORMATION
  Report Type: Spontaneous
  Country: US (occurrence: US)
  Receive Date: 20140423
  Receipt Date: 20140423
  Transmission Date: 20141212
  Serious: No
  Sender: FDA-Public Use
  Company Number: US-BIOGENIDEC-2014BI034811

PATIENT
  Age: 53 Year
  Sex: Female

DRUGS (3)
  1. TECFIDERA [Suspect]
     Indication: MULTIPLE SCLEROSIS
     Route: 048
     Dates: start: 20140305, end: 20140318
  2. TECFIDERA [Suspect]
     Indication: MULTIPLE SCLEROSIS
     Route: 048
     Dates: start: 20140319
  3. PROVIGIL [Concomitant]
     Route: 048

REACTIONS (4)
  - Drug ineffective [Unknown]
  - Rash [Unknown]
  - Diarrhoea [Unknown]
  - Multiple sclerosis relapse [Unknown]
